FAERS Safety Report 8682204 (Version 4)
Quarter: 2012Q4

REPORT INFORMATION
  Report Type: 
  Country: JP (occurrence: JP)
  Receive Date: 20120725
  Receipt Date: 20120914
  Transmission Date: 20130627
  Serious: Yes (Hospitalization)
  Sender: FDA-Public Use
  Company Number: JP-UCBSA-062273

PATIENT
  Age: 80 Year
  Sex: Male

DRUGS (13)
  1. XYZAL [Suspect]
     Indication: PRURITUS
     Route: 048
     Dates: start: 20120420, end: 20120713
  2. FUROSEMIDE [Concomitant]
     Route: 048
  3. ZYLORIC [Concomitant]
     Route: 048
  4. PLAVIX [Concomitant]
     Route: 048
  5. PLETAAL OD [Concomitant]
     Route: 048
  6. RENIVACE [Concomitant]
     Route: 048
  7. ECARD [Concomitant]
     Route: 048
  8. NORVASC OD [Concomitant]
     Route: 048
  9. MYSLEE [Concomitant]
     Route: 048
  10. LENDORMIN [Concomitant]
     Route: 048
  11. EURAX [Concomitant]
     Route: 061
  12. FULMETA [Concomitant]
     Dosage: LOTION ONE TIME DAILY
     Route: 061
  13. VICTOZA [Concomitant]
     Route: 058

REACTIONS (2)
  - Platelet count decreased [Recovered/Resolved]
  - Asthenia [Unknown]
